FAERS Safety Report 17186827 (Version 1)
Quarter: 2019Q4

REPORT INFORMATION
  Report Type: Spontaneous
  Country: CA (occurrence: CA)
  Receive Date: 20191220
  Receipt Date: 20191220
  Transmission Date: 20200122
  Serious: Yes (Other)
  Sender: FDA-Public Use
  Company Number: CA-PFIZER INC-2019546232

PATIENT
  Age: 66 Year
  Sex: Male

DRUGS (9)
  1. CLINDAMYCIN PHOSPHATE. [Suspect]
     Active Substance: CLINDAMYCIN PHOSPHATE
     Route: 065
  2. XELJANZ [Suspect]
     Active Substance: TOFACITINIB CITRATE
     Indication: ARTHRITIS
     Route: 065
  3. HUMIRA [Suspect]
     Active Substance: ADALIMUMAB
     Dosage: 40 MG, 1 EVERY 1 WEEK(S)
     Route: 058
  4. VEDOLIZUMAB [Suspect]
     Active Substance: VEDOLIZUMAB
     Indication: ANKYLOSING SPONDYLITIS
     Dosage: 1 EVERY 4 WEEK(S)
     Route: 065
  5. REMICADE [Suspect]
     Active Substance: INFLIXIMAB
     Route: 065
  6. 5-ASA [Suspect]
     Active Substance: MESALAMINE
     Route: 065
  7. CODEINE [Suspect]
     Active Substance: CODEINE
     Dosage: 30 MG, 2X/DAY
     Route: 065
  8. PENTASA [Suspect]
     Active Substance: MESALAMINE
     Route: 065
  9. HUMIRA [Suspect]
     Active Substance: ADALIMUMAB
     Dosage: 40 MG, 1 EVERY 2 WEEK(S)
     Route: 058

REACTIONS (23)
  - Overgrowth bacterial [Unknown]
  - Pouchitis [Unknown]
  - Drug specific antibody present [Unknown]
  - Gastrointestinal mucosa hyperaemia [Unknown]
  - Rash [Unknown]
  - Arthritis [Unknown]
  - Calcium deficiency [Unknown]
  - Drug ineffective [Unknown]
  - Stress [Unknown]
  - Cholecystectomy [Unknown]
  - Haematocrit decreased [Unknown]
  - Proctitis [Unknown]
  - Scar [Unknown]
  - Anal ulcer [Unknown]
  - Red blood cell count decreased [Unknown]
  - Ulcer [Unknown]
  - Ankylosing spondylitis [Unknown]
  - C-reactive protein increased [Unknown]
  - Diarrhoea [Unknown]
  - Inflammatory bowel disease [Unknown]
  - Frequent bowel movements [Unknown]
  - Haemoglobin decreased [Unknown]
  - Red blood cell sedimentation rate increased [Unknown]
